FAERS Safety Report 18584735 (Version 1)
Quarter: 2020Q4

REPORT INFORMATION
  Report Type: Report from Study
  Country: CA (occurrence: CA)
  Receive Date: 20201207
  Receipt Date: 20201207
  Transmission Date: 20210114
  Serious: Yes (Other)
  Sender: FDA-Public Use
  Company Number: CA-GILEAD-2020-0507219

PATIENT
  Age: 41 Year
  Sex: Male

DRUGS (1)
  1. AZTREONAM LYSINE [Suspect]
     Active Substance: AZTREONAM LYSINE
     Indication: BRONCHITIS
     Dosage: UNK
     Route: 055
     Dates: start: 20201110

REACTIONS (5)
  - Pyrexia [Recovered/Resolved]
  - Abdominal pain [Unknown]
  - Off label use [Not Recovered/Not Resolved]
  - Nephrolithiasis [Unknown]
  - Wheezing [Recovered/Resolved]

NARRATIVE: CASE EVENT DATE: 2020
